FAERS Safety Report 7263082-8 (Version None)
Quarter: 2011Q1

REPORT INFORMATION
  Report Type: 
  Country: None (occurrence: None)
  Receive Date: 20110130
  Receipt Date: 20101004
  Transmission Date: 20110831
  Serious: No
  Sender: FDA-Public Use
  Company Number: US-ABBOTT-10P-163-0675603-00

PATIENT
  Age: 50 Year
  Sex: Female

DRUGS (3)
  1. ARAVA [Concomitant]
     Indication: RHEUMATOID ARTHRITIS
     Route: 048
  2. SYNTHROID [Concomitant]
     Indication: PRODUCT USED FOR UNKNOWN INDICATION
     Route: 048
  3. HUMIRA [Suspect]
     Indication: RHEUMATOID ARTHRITIS
     Dates: start: 20100527, end: 20101004

REACTIONS (2)
  - ARTHRALGIA [None]
  - RHEUMATOID ARTHRITIS [None]
